FAERS Safety Report 18555461 (Version 1)
Quarter: 2020Q4

REPORT INFORMATION
  Report Type: Spontaneous
  Country: US (occurrence: US)
  Receive Date: 20201127
  Receipt Date: 20201127
  Transmission Date: 20210114
  Serious: Yes (Other)
  Sender: FDA-Public Use
  Company Number: US-BAUSCH-BL-2020-034461

PATIENT
  Age: 54 Year
  Sex: Male
  Weight: 90.4 kg

DRUGS (1)
  1. ISOPROTERENOL. [Suspect]
     Active Substance: ISOPROTERENOL
     Indication: PRODUCT USED FOR UNKNOWN INDICATION
     Dosage: 5 UG/MIN
     Route: 042

REACTIONS (1)
  - Arteriospasm coronary [Recovered/Resolved]
